FAERS Safety Report 8816685 (Version 1)
Quarter: 2012Q4

REPORT INFORMATION
  Report Type: Spontaneous
  Country: US (occurrence: None)
  Receive Date: 20120928
  Receipt Date: 20120928
  Transmission Date: 20130627
  Serious: Yes (Other)
  Sender: FDA-Public Use
  Company Number: 2012SA068769

PATIENT
  Age: 66 Year
  Sex: Male

DRUGS (1)
  1. ICY HOT POWER GEL [Suspect]
     Route: 061
     Dates: start: 2012, end: 2012

REACTIONS (3)
  - Product quality issue [None]
  - Blister [None]
  - Thermal burn [None]
